FAERS Safety Report 12312093 (Version 1)
Quarter: 2016Q2

REPORT INFORMATION
  Report Type: Spontaneous
  Country: US (occurrence: US)
  Receive Date: 20160427
  Receipt Date: 20160427
  Transmission Date: 20160815
  Serious: Yes (Hospitalization)
  Sender: FDA-Public Use
  Company Number: US-TEIKOKU PHARMA USA-TPU2016-00245

PATIENT
  Age: 85 Year
  Sex: Female
  Weight: 79.45 kg

DRUGS (3)
  1. LIDOCAINE PATCH 5% [Suspect]
     Active Substance: LIDOCAINE
     Indication: SPONDYLITIS
     Dosage: ONE 5% PATCH TOPICALLY TO NECK FOR 12 HOURS ON
     Route: 061
  2. LIDOCAINE PATCH [Suspect]
     Active Substance: LIDOCAINE
     Indication: CONTUSION
     Dosage: ONE 5% PATCH TOPICALLY TO RIGHT RIBS AND RIGHT HAND FOR 12 HOURS ON
     Route: 061
     Dates: start: 20160408
  3. LIDOCAINE PATCH [Suspect]
     Active Substance: LIDOCAINE
     Indication: PAIN IN EXTREMITY

REACTIONS (3)
  - Contusion [Not Recovered/Not Resolved]
  - Drug ineffective for unapproved indication [Not Recovered/Not Resolved]
  - Fall [Unknown]

NARRATIVE: CASE EVENT DATE: 20160407
